FAERS Safety Report 8916599 (Version 1)
Quarter: 2012Q4

REPORT INFORMATION
  Report Type: Report from Study
  Country: JP (occurrence: JP)
  Receive Date: 20121120
  Receipt Date: 20121120
  Transmission Date: 20130627
  Serious: Yes (Other)
  Sender: FDA-Public Use
  Company Number: JP-VERTEX PHARMACEUTICAL INC.-AE-2012-009502

PATIENT
  Age: 41 Year
  Sex: Female

DRUGS (10)
  1. VX-950 (TELAPREVIR) [Suspect]
     Indication: CHRONIC HEPATITIS C
     Dosage: 2250 mg, qd
     Route: 048
     Dates: start: 20120321, end: 20120508
  2. VX-950 (TELAPREVIR) [Suspect]
     Dosage: 1500 mg, qd
     Route: 048
     Dates: start: 20120509, end: 20120612
  3. RIBAVIRIN [Suspect]
     Indication: CHRONIC HEPATITIS C
     Dosage: 400 mg, qd
     Route: 048
     Dates: start: 20120321, end: 20120522
  4. RIBAVIRIN [Suspect]
     Dosage: 200 mg, qd
     Route: 048
     Dates: start: 20120523, end: 20120612
  5. RIBAVIRIN [Suspect]
     Dosage: 400 mg, qd
     Route: 048
     Dates: start: 20120613
  6. PEGINTERFERON ALFA-2B [Suspect]
     Indication: CHRONIC HEPATITIS C
     Dosage: 1.5 ?g/kg, qw
     Route: 058
     Dates: start: 20120321
  7. TSUMURA CHOREITO [Concomitant]
     Dosage: 7.5 g, qd
     Route: 048
  8. LOXOPROFEN SODIUM KOKANDO [Concomitant]
     Dosage: 60 mg, prn
     Route: 048
     Dates: start: 20120321
  9. MUCOSTA [Concomitant]
     Dosage: 100 mg, prn
     Route: 048
     Dates: start: 20120321
  10. ALLEGRA [Concomitant]
     Dosage: 120 mg, qd
     Route: 048
     Dates: start: 20120418

REACTIONS (1)
  - White blood cell count decreased [Recovered/Resolved]
